FAERS Safety Report 7210620-7 (Version None)
Quarter: 2010Q4

REPORT INFORMATION
  Report Type: 
  Country: None (occurrence: None)
  Receive Date: 20101126
  Receipt Date: 20100930
  Transmission Date: 20110411
  Serious: No
  Sender: FDA-Public Use
  Company Number: 316006

PATIENT
  Sex: Female

DRUGS (1)
  1. VICTOZA [Suspect]
     Indication: WEIGHT DECREASED
     Dosage: 1.2 MG, SUBCUTANEOUS
     Route: 058
     Dates: start: 20100924

REACTIONS (2)
  - VOMITING [None]
  - WEIGHT DECREASED [None]
